FAERS Safety Report 22103917 (Version 2)
Quarter: 2023Q1

REPORT INFORMATION
  Report Type: Report from Study
  Country: US (occurrence: US)
  Receive Date: 20230316
  Receipt Date: 20230323
  Transmission Date: 20230417
  Serious: Yes (Death, Other)
  Sender: FDA-Public Use
  Company Number: US-ALNYLAM PHARMACEUTICALS, INC.-ALN-2023-001155

PATIENT

DRUGS (1)
  1. GIVLAARI [Suspect]
     Active Substance: GIVOSIRAN SODIUM
     Indication: Porphyria acute
     Dosage: 234.73 MILLIGRAM, MONTHLY
     Route: 058
     Dates: start: 20220620, end: 20220620

REACTIONS (1)
  - Death [Fatal]

NARRATIVE: CASE EVENT DATE: 20230301
